FAERS Safety Report 12297959 (Version 1)
Quarter: 2016Q2

REPORT INFORMATION
  Report Type: Report from Study
  Country: CA (occurrence: CA)
  Receive Date: 20160422
  Receipt Date: 20160422
  Transmission Date: 20160815
  Serious: Yes (Other)
  Sender: FDA-Public Use
  Company Number: CA-AMGEN-CANSP2016006846

PATIENT
  Age: 64 Year
  Sex: Male

DRUGS (3)
  1. VITAMIN B12 [Concomitant]
     Active Substance: CYANOCOBALAMIN
     Dosage: UNK
  2. ENBREL [Suspect]
     Active Substance: ETANERCEPT
     Indication: PSORIATIC ARTHROPATHY
     Dosage: UNK, QWK
     Route: 065
     Dates: start: 2015
  3. ENBREL [Suspect]
     Active Substance: ETANERCEPT
     Indication: PSORIASIS
     Dosage: 50 MG, 2 TIMES/WK
     Route: 065
     Dates: start: 20080622

REACTIONS (18)
  - Tooth extraction [Unknown]
  - Lung neoplasm malignant [Unknown]
  - Arthralgia [Unknown]
  - Blood cholesterol [Unknown]
  - Inflammation [Unknown]
  - Ill-defined disorder [Unknown]
  - Tenderness [Not Recovered/Not Resolved]
  - Stress [Unknown]
  - Musculoskeletal discomfort [Unknown]
  - Joint injury [Not Recovered/Not Resolved]
  - Carotid artery occlusion [Unknown]
  - Cerebrovascular accident [Unknown]
  - Insomnia [Unknown]
  - Osteoarthritis [Unknown]
  - Intentional product use issue [Unknown]
  - Arthritis [Unknown]
  - Pain [Unknown]
  - Psoriasis [Unknown]

NARRATIVE: CASE EVENT DATE: 20080622
